FAERS Safety Report 4951509-3 (Version None)
Quarter: 2006Q1

REPORT INFORMATION
  Report Type: 
  Country: None (occurrence: None)
  Receive Date: 20060317
  Receipt Date: 20060303
  Transmission Date: 20060701
  Serious: Yes (Death)
  Sender: FDA-Public Use
  Company Number: COT_0419_2006

PATIENT
  Age: 21 Year
  Sex: Female
  Weight: 39.0093 kg

DRUGS (10)
  1. VENTAVIS [Suspect]
     Indication: PULMONARY HYPERTENSION
     Dosage: 5 MCG  5XD  IH
     Route: 055
     Dates: start: 20051017
  2. METHAMPHETAMINE HYDROCHLORIDE [Suspect]
     Indication: DRUG ABUSER
     Dates: start: 20060222, end: 20060222
  3. PREVACID [Concomitant]
  4. CALCITRIOL [Concomitant]
  5. LIPITOR [Concomitant]
  6. ZOLOFT [Concomitant]
  7. SEROQUEL [Concomitant]
  8. MIRAPEX [Concomitant]
  9. DULCOLAX [Concomitant]
  10. ARANESP [Concomitant]

REACTIONS (4)
  - CYANOSIS [None]
  - DRUG ABUSER [None]
  - LOSS OF CONSCIOUSNESS [None]
  - OVERDOSE [None]
